FAERS Safety Report 23961703 (Version 1)
Quarter: 2024Q2

REPORT INFORMATION
  Report Type: Report from Study
  Country: CA (occurrence: CA)
  Receive Date: 20240611
  Receipt Date: 20240611
  Transmission Date: 20240716
  Serious: Yes (Life-Threatening, Hospitalization, Other)
  Sender: FDA-Public Use
  Company Number: CA-BIOVITRUM-2024-CA-003150

PATIENT
  Weight: 58 kg

DRUGS (6)
  1. PEGCETACOPLAN [Suspect]
     Active Substance: PEGCETACOPLAN
     Indication: Paroxysmal nocturnal haemoglobinuria
     Dosage: 1 VIAL TWICE WEEKLY IN DAYS 1 AND 4
     Route: 058
     Dates: start: 20240221
  2. PEGCETACOPLAN [Suspect]
     Active Substance: PEGCETACOPLAN
     Dosage: FIRST DOSE
     Route: 058
     Dates: start: 20240221, end: 20240221
  3. CLONAZEPAM [Concomitant]
     Active Substance: CLONAZEPAM
     Indication: Insomnia
     Dosage: AT BEDTIME
     Route: 048
  4. RAVULIZUMAB [Concomitant]
     Active Substance: RAVULIZUMAB
     Indication: Paroxysmal nocturnal haemoglobinuria
     Dosage: 3000.000MG
     Route: 042
  5. XARELTO [Concomitant]
     Active Substance: RIVAROXABAN
     Indication: Prophylaxis
     Dosage: 20 UNIT NOT REPORTED DAILY
     Route: 048
  6. FOLVITE [Concomitant]
     Active Substance: FOLIC ACID
     Indication: Haemolysis
     Dosage: DAILY
     Route: 048

REACTIONS (1)
  - Anaphylactic reaction [Recovered/Resolved]

NARRATIVE: CASE EVENT DATE: 20240221
